APPROVED DRUG PRODUCT: ACYCLOVIR
Active Ingredient: ACYCLOVIR
Strength: 800MG
Dosage Form/Route: TABLET;ORAL
Application: A204314 | Product #002 | TE Code: AB
Applicant: ZYDUS PHARMACEUTICALS USA INC
Approved: Aug 19, 2014 | RLD: No | RS: No | Type: RX